FAERS Safety Report 9964102 (Version 2)
Quarter: 2014Q1

REPORT INFORMATION
  Report Type: Spontaneous
  Country: US (occurrence: US)
  Receive Date: 20140305
  Receipt Date: 20140328
  Transmission Date: 20141002
  Serious: Yes (Death, Hospitalization)
  Sender: FDA-Public Use
  Company Number: US-B.I. PHARMACEUTICALS,INC./RIDGEFIELD-2014-BI-09443BP

PATIENT
  Age: 75 Year
  Sex: Male
  Weight: 77.11 kg

DRUGS (26)
  1. PRADAXA [Suspect]
     Indication: ATRIAL FIBRILLATION
     Dosage: 300 MG
     Route: 048
     Dates: start: 20101228, end: 20120305
  2. TYLENOL EXTRA STRENGTH [Concomitant]
     Route: 048
  3. FOSAMAX [Concomitant]
     Dosage: 10 MG
     Route: 048
  4. TUMS E-X [Concomitant]
     Route: 048
  5. VITAMIN D3 [Concomitant]
     Dosage: 5000 U
     Route: 048
  6. FLEXERIL [Concomitant]
     Route: 048
  7. BENADRYL [Concomitant]
     Route: 048
  8. DEPAKOTE [Concomitant]
     Dosage: 750 MG
     Route: 048
  9. COLACE [Concomitant]
     Dosage: 200 MG
     Route: 048
  10. LEXAPRO [Concomitant]
     Dosage: 10 MG
     Route: 048
  11. MENTHOL COUGH DROPS [Concomitant]
     Route: 065
  12. PROSCAR [Concomitant]
     Dosage: 5 MG
     Route: 048
  13. FOLVITE [Concomitant]
     Dosage: 1 MG
     Route: 048
  14. LASIX [Concomitant]
     Dosage: 80 MG
     Route: 048
  15. NORCO [Concomitant]
     Route: 065
  16. SYNTHROID [Concomitant]
     Dosage: 25 MCG
     Route: 048
  17. LOPERMIDE-SIMETHICONE [Concomitant]
     Route: 048
  18. ATIVAN [Concomitant]
     Route: 048
  19. TOPROL XL [Concomitant]
     Dosage: 12.5 MG
     Route: 048
  20. MULTIVITAMIN [Concomitant]
     Route: 048
  21. PRILOSEC [Concomitant]
     Dosage: 80 MG
     Route: 048
  22. K-DUR [Concomitant]
     Dosage: 20 MEQ
     Route: 048
  23. PRAVACHOL [Concomitant]
     Dosage: 10 MG
     Route: 048
  24. EXELON [Concomitant]
     Route: 048
  25. ALDACTONE [Concomitant]
     Dosage: 25 MG
     Route: 048
  26. FLOMAX [Concomitant]
     Dosage: 0.4 MG
     Route: 048

REACTIONS (1)
  - Cerebral haemorrhage [Fatal]
